FAERS Safety Report 4745645-4 (Version None)
Quarter: 2005Q3

REPORT INFORMATION
  Report Type: 
  Country: None (occurrence: None)
  Receive Date: 20050811
  Receipt Date: 20050802
  Transmission Date: 20060218
  Serious: Yes (Death)
  Sender: FDA-Public Use
  Company Number: 2005-08-0222

PATIENT
  Age: 9 Year
  Sex: Female

DRUGS (5)
  1. RIBAVIRIN [Suspect]
     Indication: HEPATITIS C
     Dosage: SEE IMAGE
     Route: 048
  2. RIBAVIRIN [Suspect]
     Indication: HEPATITIS C
     Dosage: SEE IMAGE
     Route: 048
  3. INTERFERON ALFA-2B INJECTABLE [Suspect]
     Indication: HEPATITIS C
     Dosage: SEE IMAGE
     Route: 058
  4. INTERFERON ALFA-2B INJECTABLE [Suspect]
     Indication: HEPATITIS C
     Dosage: SEE IMAGE
     Route: 058
  5. PARACETAMOL [Concomitant]

REACTIONS (10)
  - ASCITES [None]
  - DRUG INEFFECTIVE [None]
  - HEPATIC FAILURE [None]
  - HEPATIC FUNCTION ABNORMAL [None]
  - HYPERBILIRUBINAEMIA [None]
  - LIVER TRANSPLANT [None]
  - PORTAL HYPERTENSION [None]
  - PRURITUS [None]
  - THERAPY NON-RESPONDER [None]
  - TRANSPLANT REJECTION [None]
